FAERS Safety Report 15941021 (Version 6)
Quarter: 2023Q1

REPORT INFORMATION
  Report Type: Spontaneous
  Country: US (occurrence: None)
  Receive Date: 20190208
  Receipt Date: 20230120
  Transmission Date: 20230417
  Serious: Yes (Death, Hospitalization, Other)
  Sender: FDA-Public Use
  Company Number: 2018SF25996

PATIENT
  Age: 27420 Day
  Sex: Male

DRUGS (31)
  1. NEXIUM [Suspect]
     Active Substance: ESOMEPRAZOLE MAGNESIUM
     Indication: Gastrooesophageal reflux disease
     Route: 048
     Dates: start: 20070101, end: 20160131
  2. NEXIUM [Suspect]
     Active Substance: ESOMEPRAZOLE MAGNESIUM
     Indication: Gastrooesophageal reflux disease
     Route: 048
     Dates: start: 20080101, end: 20160103
  3. NEXIUM 24HR [Suspect]
     Active Substance: ESOMEPRAZOLE MAGNESIUM
     Indication: Gastrooesophageal reflux disease
     Route: 048
  4. NEXIUM 24HR [Suspect]
     Active Substance: ESOMEPRAZOLE MAGNESIUM
     Indication: Gastrooesophageal reflux disease
     Route: 048
     Dates: start: 20140301, end: 20160103
  5. PRILOSEC [Suspect]
     Active Substance: OMEPRAZOLE MAGNESIUM
     Dosage: 40 MG DAILY
     Route: 048
  6. PRILOSEC OTC [Suspect]
     Active Substance: OMEPRAZOLE MAGNESIUM
     Indication: Gastrooesophageal reflux disease
     Route: 048
  7. PRILOSEC OTC [Suspect]
     Active Substance: OMEPRAZOLE MAGNESIUM
     Indication: Gastrooesophageal reflux disease
     Route: 048
     Dates: start: 20080101, end: 20160103
  8. PREVACID [Suspect]
     Active Substance: LANSOPRAZOLE
     Indication: Gastrooesophageal reflux disease
     Route: 065
  9. PREVACID [Suspect]
     Active Substance: LANSOPRAZOLE
     Indication: Gastrooesophageal reflux disease
     Route: 065
     Dates: start: 20080101, end: 20160103
  10. PREVACID 24 HR [Suspect]
     Active Substance: LANSOPRAZOLE
     Dosage: 15 MG DAILY
     Route: 065
  11. TAMSULOSIN [Concomitant]
     Active Substance: TAMSULOSIN
  12. METOLAZONE [Concomitant]
     Active Substance: METOLAZONE
  13. LASIX [Concomitant]
     Active Substance: FUROSEMIDE
  14. CEFAZOLIN [Concomitant]
     Active Substance: CEFAZOLIN
  15. LOVAZA [Concomitant]
     Active Substance: OMEGA-3-ACID ETHYL ESTERS
     Dates: start: 20090624
  16. LEVAQUIN [Concomitant]
     Active Substance: LEVOFLOXACIN
     Dates: start: 20091104
  17. SIMVASTATIN [Concomitant]
     Active Substance: SIMVASTATIN
     Dates: start: 20100507
  18. KLOR-CON [Concomitant]
     Active Substance: POTASSIUM CHLORIDE
  19. CIPROFLOXACIN [Concomitant]
     Active Substance: CIPROFLOXACIN
     Dates: start: 20100302
  20. ENALAPRIL [Concomitant]
     Active Substance: ENALAPRIL
     Dates: start: 20100625
  21. AMOXICILLIN [Concomitant]
     Active Substance: AMOXICILLIN
     Dates: start: 20100816
  22. DIAZEPAM [Concomitant]
     Active Substance: DIAZEPAM
     Dates: start: 20100827
  23. ACETYLDIGOXIN/BENCYCLANE FUMARATE [Concomitant]
     Dates: start: 20100827
  24. ACETYLDIGOXIN/BENCYCLANE FUMARATE [Concomitant]
     Dates: start: 20101006
  25. COREG [Concomitant]
     Active Substance: CARVEDILOL
  26. ALDACTONE [Concomitant]
     Active Substance: SPIRONOLACTONE
  27. AMIODARONE HYDROCHLORIDE [Concomitant]
     Active Substance: AMIODARONE HYDROCHLORIDE
     Dates: start: 20150223
  28. DIGITEK [Concomitant]
     Active Substance: DIGOXIN
  29. HYDROCHLOROTHIAZIDE [Concomitant]
     Active Substance: HYDROCHLOROTHIAZIDE
  30. MINOCYCLINE [Concomitant]
     Active Substance: MINOCYCLINE HYDROCHLORIDE
  31. DOCUSATE SODIUM [Concomitant]
     Active Substance: DOCUSATE SODIUM

REACTIONS (7)
  - Cardiac failure chronic [Fatal]
  - Acute kidney injury [Not Recovered/Not Resolved]
  - Chronic kidney disease [Not Recovered/Not Resolved]
  - Tubulointerstitial nephritis [Not Recovered/Not Resolved]
  - End stage renal disease [Not Recovered/Not Resolved]
  - Renal failure [Unknown]
  - Renal injury [Unknown]

NARRATIVE: CASE EVENT DATE: 20151106
